FAERS Safety Report 14022130 (Version 1)
Quarter: 2017Q3

REPORT INFORMATION
  Report Type: Spontaneous
  Country: JP (occurrence: JP)
  Receive Date: 20170928
  Receipt Date: 20170928
  Transmission Date: 20171128
  Serious: Yes (Hospitalization)
  Sender: FDA-Public Use
  Company Number: JP-BAUSCH-BL-2017-027898

PATIENT
  Age: 69 Year
  Sex: Female

DRUGS (1)
  1. TALION [Suspect]
     Active Substance: BEPOTASTINE
     Indication: PRODUCT USED FOR UNKNOWN INDICATION
     Dosage: AT A DOSE OF I MG/DAY
     Route: 048

REACTIONS (2)
  - Agranulocytosis [Unknown]
  - Elderly [Unknown]
